FAERS Safety Report 25410895 (Version 1)
Quarter: 2025Q2

REPORT INFORMATION
  Report Type: Spontaneous
  Country: JP (occurrence: JP)
  Receive Date: 20250609
  Receipt Date: 20250609
  Transmission Date: 20250717
  Serious: Yes (Other)
  Sender: MERCK SHARP & DOHME LLC
  Company Number: JP-009507513-2293528

PATIENT
  Age: 77 Year
  Sex: Female

DRUGS (1)
  1. PREVYMIS [Suspect]
     Active Substance: LETERMOVIR
     Indication: Antiviral prophylaxis
     Route: 065

REACTIONS (3)
  - Pancytopenia [Unknown]
  - Wound infection [Unknown]
  - Cellulitis [Unknown]
